FAERS Safety Report 8028799 (Version 2)
Quarter: 2013Q2

REPORT INFORMATION
  Report Type: Spontaneous
  Country: US (occurrence: US)
  Receive Date: 20110711
  Receipt Date: 20130429
  Transmission Date: 20140414
  Serious: Yes (Death, Hospitalization)
  Sender: FDA-Public Use
  Company Number: US-GLAXOSMITHKLINE-A0777212A

PATIENT
  Age: 55 Year
  Sex: Male
  Weight: 99.5 kg

DRUGS (2)
  1. AVANDIA [Suspect]
     Indication: TYPE 1 DIABETES MELLITUS
     Dosage: 4MG UNKNOWN
     Route: 048
     Dates: start: 2000, end: 2002
  2. AVANDAMET [Suspect]
     Indication: TYPE 1 DIABETES MELLITUS
     Route: 048

REACTIONS (6)
  - Cardiac failure congestive [Unknown]
  - General physical health deterioration [Unknown]
  - Death [Fatal]
  - Atrial fibrillation [Unknown]
  - Coronary artery disease [Unknown]
  - Ventricular tachycardia [Unknown]
